FAERS Safety Report 6679189-X (Version None)
Quarter: 2010Q2

REPORT INFORMATION
  Report Type: 
  Country: None (occurrence: None)
  Receive Date: 20100409
  Receipt Date: 20100405
  Transmission Date: 20101027
  Serious: Yes (Death, Life-Threatening, Hospitalization)
  Sender: FDA-Public Use
  Company Number: 494122

PATIENT
  Age: 65 Year
  Sex: Male

DRUGS (2)
  1. CYTARABINE [Suspect]
     Indication: ACUTE MYELOID LEUKAEMIA
     Dosage: 33.2 MG, 1 DAY, SUBCUTANEOUS ; 33.2 MG 1 DAY, SUBCUTANEOUS
     Route: 058
     Dates: start: 20080407, end: 20080416
  2. CYTARABINE [Suspect]
     Indication: ACUTE MYELOID LEUKAEMIA
     Dosage: 33.2 MG, 1 DAY, SUBCUTANEOUS ; 33.2 MG 1 DAY, SUBCUTANEOUS
     Route: 058
     Dates: start: 20080505, end: 20080514

REACTIONS (15)
  - ABSCESS [None]
  - COMPRESSION FRACTURE [None]
  - COUGH [None]
  - FEBRILE NEUTROPENIA [None]
  - HEADACHE [None]
  - HEPATOSPLENOMEGALY [None]
  - HERNIA [None]
  - LOBAR PNEUMONIA [None]
  - MYALGIA [None]
  - OSTEOPOROSIS [None]
  - PANCYTOPENIA [None]
  - PLEURAL EFFUSION [None]
  - PULMONARY HAEMORRHAGE [None]
  - SEPTIC SHOCK [None]
  - SPINAL OSTEOARTHRITIS [None]
